FAERS Safety Report 10220633 (Version 1)
Quarter: 2014Q2

REPORT INFORMATION
  Report Type: Spontaneous
  Country: US (occurrence: None)
  Receive Date: 20140604
  Receipt Date: 20140604
  Transmission Date: 20141212
  Serious: Yes (Other)
  Sender: FDA-Public Use
  Company Number: 2014SA070098

PATIENT
  Sex: Female

DRUGS (1)
  1. UNISOM SLEEPGELS / UNKNOWN / UNKNOWN [Suspect]
     Indication: PRODUCT USED FOR UNKNOWN INDICATION

REACTIONS (3)
  - Convulsion [None]
  - Vomiting [None]
  - Drug hypersensitivity [None]
